FAERS Safety Report 22881195 (Version 2)
Quarter: 2023Q4

REPORT INFORMATION
  Report Type: Spontaneous
  Country: US (occurrence: None)
  Receive Date: 20230830
  Receipt Date: 20231005
  Transmission Date: 20240110
  Serious: No
  Sender: FDA-Public Use
  Company Number: 2023A195136

PATIENT
  Age: 92 Year
  Sex: Female

DRUGS (1)
  1. BEVESPI AEROSPHERE [Suspect]
     Active Substance: FORMOTEROL FUMARATE\GLYCOPYRROLATE
     Indication: Chronic obstructive pulmonary disease
     Dosage: 2 PUFFS
     Route: 055

REACTIONS (5)
  - Oropharyngeal discomfort [Unknown]
  - Product dose omission issue [Not Recovered/Not Resolved]
  - Device defective [Unknown]
  - Incorrect route of product administration [Unknown]
  - Drug ineffective [Unknown]
